FAERS Safety Report 21811962 (Version 1)
Quarter: 2023Q1

REPORT INFORMATION
  Report Type: Spontaneous
  Country: US (occurrence: None)
  Receive Date: 20230103
  Receipt Date: 20230103
  Transmission Date: 20230418
  Serious: No
  Sender: FDA-Public Use
  Company Number: None

PATIENT
  Age: 17 Year
  Sex: Male
  Weight: 72.12 kg

DRUGS (4)
  1. MESNEX [Suspect]
     Active Substance: MESNA
     Indication: Bone cancer
     Dosage: FREQUENCY : AS DIRECTED;?
     Dates: start: 202211
  2. MESNEX [Suspect]
     Active Substance: MESNA
     Indication: Chondrosarcoma
  3. ZIEXTENZO [Suspect]
     Active Substance: PEGFILGRASTIM-BMEZ
     Indication: Bone cancer
     Dosage: FREQUENCY : AS DIRECTED;?
     Route: 058
     Dates: start: 202210
  4. ZIEXTENZO [Suspect]
     Active Substance: PEGFILGRASTIM-BMEZ
     Indication: Chondrosarcoma

REACTIONS (1)
  - Respiratory syncytial virus infection [None]
